FAERS Safety Report 14002156 (Version 2)
Quarter: 2018Q1

REPORT INFORMATION
  Report Type: Spontaneous
  Country: US (occurrence: US)
  Receive Date: 20170922
  Receipt Date: 20180307
  Transmission Date: 20180508
  Serious: Yes (Life-Threatening, Hospitalization)
  Sender: FDA-Public Use
  Company Number: US-JNJFOC-20170915835

PATIENT
  Age: 37 Year
  Sex: Male

DRUGS (1)
  1. XARELTO [Suspect]
     Active Substance: RIVAROXABAN
     Indication: THROMBOSIS PROPHYLAXIS
     Route: 048
     Dates: start: 20151230, end: 20161223

REACTIONS (2)
  - Haematoma [Recovered/Resolved]
  - Pharyngeal haemorrhage [Recovering/Resolving]

NARRATIVE: CASE EVENT DATE: 201609
